FAERS Safety Report 17490732 (Version 1)
Quarter: 2020Q1

REPORT INFORMATION
  Report Type: Spontaneous
  Country: US (occurrence: US)
  Receive Date: 20200303
  Receipt Date: 20200303
  Transmission Date: 20200409
  Serious: No
  Sender: FDA-Public Use
  Company Number: US-AKORN PHARMACEUTICALS-2019AKN01025

PATIENT
  Age: 32 Year
  Sex: Female
  Weight: 77.1 kg

DRUGS (9)
  1. AMITRIPTYLINE [Suspect]
     Active Substance: AMITRIPTYLINE
     Dosage: 150 MG, 1X/DAY AT NIGHT
     Dates: start: 20190418
  2. TRILEPTAL [Concomitant]
     Active Substance: OXCARBAZEPINE
     Dosage: 600 MG, IN THE EVENING
     Dates: start: 2018
  3. MYORISAN [Suspect]
     Active Substance: ISOTRETINOIN
     Indication: ACNE
     Dosage: 30 MG, 1X/DAY
     Route: 048
     Dates: start: 20190424
  4. LUNESTA [Concomitant]
     Active Substance: ESZOPICLONE
     Dosage: 10 MG, 1X/DAY AT NIGHT
  5. GABAPENTIN. [Concomitant]
     Active Substance: GABAPENTIN
     Dosage: 1800 MG, 1X/DAY IN THE EVENING
     Dates: start: 2018
  6. MELATONIN [Concomitant]
     Active Substance: MELATONIN
     Dosage: 12 MG, 1X/DAY IN THE EVENING
     Dates: start: 2018
  7. KLONOPIN [Concomitant]
     Active Substance: CLONAZEPAM
     Dosage: IN THE EVENING
     Dates: start: 2018
  8. AMITRIPTYLINE [Suspect]
     Active Substance: AMITRIPTYLINE
     Indication: INSOMNIA
     Dosage: 175 MG, 1X/DAY AT NIGHT
     Dates: start: 2018, end: 20190417
  9. EFFEXOR [Concomitant]
     Active Substance: VENLAFAXINE HYDROCHLORIDE
     Dosage: 225 MG, 1X/DAY IN THE MORNING
     Dates: start: 2018

REACTIONS (5)
  - Insomnia [Not Recovered/Not Resolved]
  - Off label use [Not Recovered/Not Resolved]
  - Arthralgia [Not Recovered/Not Resolved]
  - Pain [Unknown]
  - Myalgia [Not Recovered/Not Resolved]

NARRATIVE: CASE EVENT DATE: 2019
